FAERS Safety Report 24954946 (Version 5)
Quarter: 2025Q2

REPORT INFORMATION
  Report Type: Spontaneous
  Country: None (occurrence: CA)
  Receive Date: 20250211
  Receipt Date: 20250610
  Transmission Date: 20250716
  Serious: Yes (Other)
  Sender: MYLAN
  Company Number: CA-MYLANLABS-2024M1115474

PATIENT
  Age: 69 Year
  Sex: Female

DRUGS (21)
  1. REVATIO [Suspect]
     Active Substance: SILDENAFIL CITRATE
     Indication: Pulmonary arterial hypertension
     Dosage: 20 MILLIGRAM, TID (THREE TIMES A DAY)
     Dates: start: 20241018
  2. REVATIO [Suspect]
     Active Substance: SILDENAFIL CITRATE
     Dosage: 20 MILLIGRAM, BID (IN 2 DAY)
     Dates: start: 20241018
  3. NEXIUM [Concomitant]
     Active Substance: ESOMEPRAZOLE MAGNESIUM
     Indication: Ulcer
  4. EPLERENONE [Concomitant]
     Active Substance: EPLERENONE
  5. POTASSIUM [Concomitant]
     Active Substance: POTASSIUM
  6. VITAMIN D NOS [Concomitant]
     Active Substance: CHOLECALCIFEROL\ERGOCALCIFEROL
  7. IRON [Concomitant]
     Active Substance: IRON
  8. PLAVIX [Concomitant]
     Active Substance: CLOPIDOGREL BISULFATE
  9. PREVACID [Concomitant]
     Active Substance: LANSOPRAZOLE
  10. VITAMIN B [Concomitant]
     Active Substance: VITAMIN B
  11. LYRICA [Concomitant]
     Active Substance: PREGABALIN
  12. FUROSEMIDE [Concomitant]
     Active Substance: FUROSEMIDE
  13. ENTRESTO [Concomitant]
     Active Substance: SACUBITRIL\VALSARTAN
  14. IVABRADINE [Concomitant]
     Active Substance: IVABRADINE
  15. CRESTOR [Concomitant]
     Active Substance: ROSUVASTATIN CALCIUM
  16. LORAZEPAM [Concomitant]
     Active Substance: LORAZEPAM
  17. Benzine [Concomitant]
  18. FOLIC ACID [Concomitant]
     Active Substance: FOLIC ACID
  19. SYMBICORT [Concomitant]
     Active Substance: BUDESONIDE\FORMOTEROL FUMARATE DIHYDRATE
  20. TYLENOL ARTHRITIS PAIN [Concomitant]
     Active Substance: ACETAMINOPHEN
  21. DAPAGLIFLOZIN [Concomitant]
     Active Substance: DAPAGLIFLOZIN

REACTIONS (4)
  - Inappropriate schedule of product administration [Not Recovered/Not Resolved]
  - Abdominal discomfort [Unknown]
  - Dyspepsia [Unknown]
  - Therapeutic product effect decreased [Unknown]

NARRATIVE: CASE EVENT DATE: 20241217
